FAERS Safety Report 24434167 (Version 1)
Quarter: 2024Q4

REPORT INFORMATION
  Report Type: Spontaneous
  Country: CN (occurrence: CN)
  Receive Date: 20241014
  Receipt Date: 20241014
  Transmission Date: 20250115
  Serious: Yes (Hospitalization)
  Sender: ELI LILLY AND COMPANY
  Company Number: CN-ELI_LILLY_AND_COMPANY-CN202410006212

PATIENT
  Sex: Female
  Weight: 56 kg

DRUGS (2)
  1. HUMULIN R [Suspect]
     Active Substance: INSULIN HUMAN
     Indication: Diabetes mellitus
     Dosage: 13 INTERNATIONAL UNIT, BID
     Route: 058
     Dates: start: 2009, end: 2012
  2. HUMALOG [Suspect]
     Active Substance: INSULIN LISPRO
     Indication: Diabetes mellitus
     Dosage: 14 U, TID
     Route: 058
     Dates: start: 2012

REACTIONS (6)
  - Blood glucose increased [Unknown]
  - Drug ineffective [Unknown]
  - Blood glucose increased [Unknown]
  - Swelling of eyelid [Unknown]
  - Hypertension [Unknown]
  - Hypoglycaemia [Unknown]

NARRATIVE: CASE EVENT DATE: 20120101
